FAERS Safety Report 7629620-8 (Version None)
Quarter: 2011Q3

REPORT INFORMATION
  Report Type: 
  Country: None (occurrence: None)
  Receive Date: 20110722
  Receipt Date: 20110712
  Transmission Date: 20111222
  Serious: Yes (Hospitalization, Other)
  Sender: FDA-Public Use
  Company Number: JP-ROCHE-777607

PATIENT
  Sex: Female
  Weight: 52 kg

DRUGS (13)
  1. ALFAROL [Concomitant]
     Route: 048
     Dates: start: 20090424
  2. PREDNISOLONE [Concomitant]
     Route: 048
  3. LOXONIN [Concomitant]
     Route: 048
     Dates: start: 20090909
  4. RIMATIL [Concomitant]
     Route: 048
  5. BREDININ [Concomitant]
     Route: 048
  6. TOCILIZUMAB [Suspect]
     Route: 041
     Dates: start: 20101022, end: 20101124
  7. TOCILIZUMAB [Suspect]
     Route: 041
     Dates: end: 20110316
  8. PREDNISOLONE [Concomitant]
     Route: 048
     Dates: start: 20101006
  9. TOCILIZUMAB [Suspect]
     Indication: RHEUMATOID ARTHRITIS
     Route: 041
     Dates: start: 20101013
  10. OLMESARTAN MEDOXOMIL [Concomitant]
     Route: 048
     Dates: start: 20101006
  11. RISEDRONATE SODIUM [Concomitant]
     Route: 048
     Dates: start: 20090424
  12. AZULFIDINE [Concomitant]
     Route: 048
  13. TOCILIZUMAB [Suspect]
     Route: 041
     Dates: start: 20101222

REACTIONS (5)
  - PNEUMONIA PNEUMOCOCCAL [None]
  - SINUSITIS [None]
  - PLEURISY [None]
  - SKIN ULCER [None]
  - LOSS OF CONSCIOUSNESS [None]
